APPROVED DRUG PRODUCT: CIPRO IN SODIUM CHLORIDE 0.9% IN PLASTIC CONTAINER
Active Ingredient: CIPROFLOXACIN
Strength: 200MG/100ML
Dosage Form/Route: INJECTABLE;INJECTION
Application: N019858 | Product #001
Applicant: BAYER PHARMACEUTICALS CORP
Approved: Dec 26, 1990 | RLD: No | RS: No | Type: DISCN